FAERS Safety Report 6371456-2 (Version None)
Quarter: 2009Q3

REPORT INFORMATION
  Report Type: 
  Country: None (occurrence: None)
  Receive Date: 20090923
  Receipt Date: 20090722
  Transmission Date: 20100115
  Serious: Yes (Hospitalization, Other)
  Sender: FDA-Public Use
  Company Number: US-ASTRAZENECA-2007UW06080

PATIENT
  Age: 14161 Day
  Sex: Male
  Weight: 112.5 kg

DRUGS (16)
  1. SEROQUEL [Suspect]
     Indication: BIPOLAR DISORDER
     Route: 048
     Dates: start: 20010101, end: 20020101
  2. SEROQUEL [Suspect]
     Indication: DEPRESSION
     Route: 048
     Dates: start: 20010101, end: 20020101
  3. SEROQUEL [Suspect]
     Route: 048
     Dates: start: 20020101, end: 20060601
  4. SEROQUEL [Suspect]
     Route: 048
     Dates: start: 20020101, end: 20060601
  5. SEROQUEL [Suspect]
     Dosage: 50 MG - 400 MG
     Route: 048
     Dates: start: 20030825
  6. SEROQUEL [Suspect]
     Dosage: 50 MG - 400 MG
     Route: 048
     Dates: start: 20030825
  7. ZYPREXA [Concomitant]
  8. RISPERDAL [Concomitant]
  9. DEPAKOTE ER [Concomitant]
     Route: 048
  10. PAXIL CR [Concomitant]
     Route: 048
  11. ZOLOFT [Concomitant]
     Route: 048
  12. CELEXA [Concomitant]
  13. REMERON [Concomitant]
  14. ALBUTEROL [Concomitant]
     Dosage: AS REQUIRED
  15. TRILAFON [Concomitant]
  16. COGENTIN [Concomitant]

REACTIONS (3)
  - DIABETES MELLITUS INADEQUATE CONTROL [None]
  - DIABETIC KETOACIDOSIS [None]
  - TYPE 2 DIABETES MELLITUS [None]
